FAERS Safety Report 4483390-3 (Version None)
Quarter: 2004Q4

REPORT INFORMATION
  Report Type: 
  Country: None (occurrence: None)
  Receive Date: 20041020
  Receipt Date: 20041013
  Transmission Date: 20050328
  Serious: Yes (Death)
  Sender: FDA-Public Use
  Company Number: HQWYE567206OCT04

PATIENT
  Age: 32 Year
  Sex: Male

DRUGS (10)
  1. RAPAMUNE [Suspect]
     Indication: PROPHYLAXIS AGAINST TRANSPLANT REJECTION
     Dosage: SEE IMAGE
     Route: 048
     Dates: start: 20040814, end: 20041001
  2. RAPAMUNE [Suspect]
     Indication: PROPHYLAXIS AGAINST TRANSPLANT REJECTION
     Dosage: SEE IMAGE
     Route: 048
     Dates: start: 20041002, end: 20041006
  3. AMLODIPINE [Concomitant]
  4. ATENOLOL [Concomitant]
  5. OMEPRAZOLE [Concomitant]
  6. CYCLOSPORINE [Concomitant]
  7. PREDNISONE [Concomitant]
  8. NYSTATIN [Concomitant]
  9. SULFAMETHAZOLE W/TRIMETHOPRIM (SULFAMETHAZOLE/TRIMETHOPRIM) [Concomitant]
  10. GANCICLOVIR SODIUM [Concomitant]

REACTIONS (15)
  - AZOTAEMIA [None]
  - BLOOD CREATININE INCREASED [None]
  - BLOOD UREA INCREASED [None]
  - DEHYDRATION [None]
  - DIALYSIS [None]
  - DIARRHOEA [None]
  - ENCEPHALOPATHY [None]
  - GASTRIC ULCER [None]
  - GENERAL PHYSICAL HEALTH DETERIORATION [None]
  - HERPES VIRUS INFECTION [None]
  - KIDNEY INFECTION [None]
  - PANCYTOPENIA [None]
  - PYREXIA [None]
  - VIRAL INFECTION [None]
  - VOMITING [None]
